FAERS Safety Report 5485905-5 (Version None)
Quarter: 2007Q4

REPORT INFORMATION
  Report Type: 
  Country: None (occurrence: None)
  Receive Date: 20071015
  Receipt Date: 20071004
  Transmission Date: 20080405
  Serious: Yes (Hospitalization)
  Sender: FDA-Public Use
  Company Number: FI-BOEHRINGER INGELHEIM PHARMACEUTICALS, INC.-2007-BP-05570YA

PATIENT
  Sex: Male
  Weight: 80 kg

DRUGS (2)
  1. TAMSULOSIN OCR [Suspect]
     Indication: BENIGN PROSTATIC HYPERPLASIA
     Route: 048
     Dates: start: 20070222
  2. BETASERC (BETAHISTINE HYDROCHLORIDE) [Concomitant]
     Indication: MENIERE'S DISEASE
     Route: 048
     Dates: start: 19940811

REACTIONS (2)
  - ACUTE MYOCARDIAL INFARCTION [None]
  - CORONARY ARTERY DISEASE [None]
